FAERS Safety Report 9564807 (Version 1)
Quarter: 2013Q3

REPORT INFORMATION
  Report Type: Spontaneous
  Country: NL (occurrence: NL)
  Receive Date: 20130930
  Receipt Date: 20130930
  Transmission Date: 20140515
  Serious: Yes (Death)
  Sender: FDA-Public Use
  Company Number: PHHY2013NL108080

PATIENT
  Sex: Female

DRUGS (1)
  1. HYDROCHLOROTHIAZIDE,VALSARTAN [Suspect]
     Dosage: 1 DF, (80 MG VALS AND 12.5 MG HCTZ)
     Dates: start: 20130404

REACTIONS (2)
  - Drug interaction [Fatal]
  - Hypokalaemia [Fatal]
